FAERS Safety Report 5770495-X (Version None)
Quarter: 2008Q2

REPORT INFORMATION
  Report Type: 
  Country: None (occurrence: None)
  Receive Date: 20080613
  Receipt Date: 20080505
  Transmission Date: 20081010
  Serious: No
  Sender: FDA-Public Use
  Company Number: US-ABBOTT-08P-163-0450538-00

PATIENT
  Sex: Female
  Weight: 55.388 kg

DRUGS (5)
  1. HUMIRA [Suspect]
     Indication: RHEUMATOID ARTHRITIS
     Route: 058
     Dates: start: 20070601
  2. METHOTREXATE [Concomitant]
     Indication: RHEUMATOID ARTHRITIS
     Dosage: 8(2.5MG) TABLETS
     Route: 048
     Dates: start: 20020101
  3. BIRTH CONTROL PILLS [Concomitant]
     Indication: HORMONE REPLACEMENT THERAPY
     Route: 048
  4. BIRTH CONTROL PILLS [Concomitant]
     Indication: ENDOMETRIOSIS
     Dosage: ADJUSTED DOSAGE
  5. BIRTH CONTROL PILLS [Concomitant]
     Dosage: ADJUSTED DOSAGE
     Dates: start: 20080201

REACTIONS (3)
  - ANAEMIA [None]
  - MENORRHAGIA [None]
  - THROMBOSIS [None]
